FAERS Safety Report 24271381 (Version 1)
Quarter: 2024Q3

REPORT INFORMATION
  Report Type: Report from Study
  Country: IN (occurrence: IN)
  Receive Date: 20240901
  Receipt Date: 20240901
  Transmission Date: 20241017
  Serious: Yes (Other)
  Sender: CIPLA
  Company Number: IN-CIPLA LTD.-2024IN09296

PATIENT

DRUGS (5)
  1. SPIRONOLACTONE\TORSEMIDE [Suspect]
     Active Substance: SPIRONOLACTONE\TORSEMIDE
     Indication: Product used for unknown indication
     Dosage: DOSE-1, FREQUENCY- 1 (UNITS UNSPECIFIED), STRENGTH-10/25MG
     Route: 048
  2. METOPROLOL SUCCINATE [Suspect]
     Active Substance: METOPROLOL SUCCINATE
     Indication: Product used for unknown indication
     Dosage: DOSE-1, FREQUENCY- 1 (UNITS UNSPECIFIED)
     Route: 048
  3. ROSEDAY A [Concomitant]
     Indication: Product used for unknown indication
     Dosage: UNK (STRENGTH: 75/10)
     Route: 065
  4. BETONIN AST [Concomitant]
     Indication: Product used for unknown indication
     Dosage: UNK
     Route: 065
  5. ARNEY [Concomitant]
     Indication: Product used for unknown indication
     Dosage: UNK (STRENGTH: 100)
     Route: 065

REACTIONS (1)
  - Haematochezia [Not Recovered/Not Resolved]

NARRATIVE: CASE EVENT DATE: 20240814
